FAERS Safety Report 9112389 (Version 1)
Quarter: 2013Q1

REPORT INFORMATION
  Report Type: Spontaneous
  Country: US (occurrence: US)
  Receive Date: 20130219
  Receipt Date: 20130219
  Transmission Date: 20140127
  Serious: No
  Sender: FDA-Public Use
  Company Number: US-BRISTOL-MYERS SQUIBB COMPANY-16710246

PATIENT
  Age: 63 Year
  Sex: Female
  Weight: 92.51 kg

DRUGS (13)
  1. ORENCIA [Suspect]
     Indication: RHEUMATOID ARTHRITIS
     Route: 042
  2. METHOTREXATE [Concomitant]
  3. DIOVAN [Concomitant]
  4. ACEON [Concomitant]
     Dosage: ACREON DR
  5. LEXAPRO [Concomitant]
  6. HUMALOG [Concomitant]
  7. HYDROXYCHLOROQUINE [Concomitant]
  8. NASONEX [Concomitant]
  9. SINGULAIR [Concomitant]
  10. VITAMIN D [Concomitant]
  11. VOLTAREN [Concomitant]
     Dosage: GEL
  12. ASPIRIN [Concomitant]
  13. CALCIUM [Concomitant]

REACTIONS (1)
  - Drug ineffective [Unknown]
